FAERS Safety Report 24446718 (Version 1)
Quarter: 2024Q4

REPORT INFORMATION
  Report Type: Report from Study
  Country: DE (occurrence: DE)
  Receive Date: 20241016
  Receipt Date: 20241016
  Transmission Date: 20250114
  Serious: No
  Sender: ROCHE
  Company Number: DE-ML42393-1053-007-2_0

PATIENT
  Age: 38 Year
  Sex: Female

DRUGS (5)
  1. OCRELIZUMAB [Suspect]
     Active Substance: OCRELIZUMAB
     Indication: Relapsing multiple sclerosis
     Dosage: DOSE FREQUENCY: ONCE
     Route: 042
     Dates: start: 20240408
  2. Ibuprofen (from Nwetherland) [Concomitant]
     Indication: Headache
     Dosage: DOSE: 400?DOSE FREQUENCY: PRN (AS NEEDED)
     Route: 048
     Dates: start: 2010
  3. BUTYLSCOPOLAMINE BROMIDE [Concomitant]
     Active Substance: BUTYLSCOPOLAMINE BROMIDE
     Dosage: DOSE: 10?DOSE FREQUENCY: PRN (AS NEEDED)
     Route: 048
     Dates: start: 2000
  4. VERTIGO VOMEX [Concomitant]
     Indication: Gastrointestinal infection
     Dosage: DOSE: 120?DOSE FREQUENCY: PRN (AS NEEDED)
     Route: 048
     Dates: start: 20241004, end: 20241004
  5. Tantum Verde (Benzydaminhydrochlorid) [Concomitant]
     Indication: Oropharyngeal pain
     Route: 048
     Dates: start: 20240413, end: 20240414

REACTIONS (1)
  - COVID-19 [Recovered/Resolved]

NARRATIVE: CASE EVENT DATE: 20240610
